FAERS Safety Report 22684610 (Version 2)
Quarter: 2024Q3

REPORT INFORMATION
  Report Type: Spontaneous
  Country: CN (occurrence: CN)
  Receive Date: 20230710
  Receipt Date: 20240808
  Transmission Date: 20241017
  Serious: Yes (Hospitalization, Other)
  Sender: PURACAP
  Company Number: CN-PURACAP-CN-2023EPCLIT01149

PATIENT
  Age: 35 Year
  Sex: Female

DRUGS (1)
  1. IBUPROFEN [Suspect]
     Active Substance: IBUPROFEN
     Indication: Product used for unknown indication
     Route: 065

REACTIONS (7)
  - Duodenitis [Recovered/Resolved]
  - Chronic gastritis [Recovered/Resolved]
  - Helicobacter infection [Recovered/Resolved]
  - Hypertension [Recovered/Resolved]
  - Gastric ulcer [Recovered/Resolved]
  - Overdose [Unknown]
  - Intentional product misuse [Unknown]
